FAERS Safety Report 16871559 (Version 1)
Quarter: 2019Q4

REPORT INFORMATION
  Report Type: Spontaneous
  Country: IT (occurrence: IT)
  Receive Date: 20191001
  Receipt Date: 20191001
  Transmission Date: 20200122
  Serious: Yes (Other)
  Sender: FDA-Public Use
  Company Number: IT-ROCHE-2420883

PATIENT

DRUGS (1)
  1. RITUXIMAB. [Suspect]
     Active Substance: RITUXIMAB
     Indication: CYTOPENIA
     Dosage: 375 MG/M2, UNK
     Route: 065

REACTIONS (3)
  - Intentional product use issue [Unknown]
  - Hypogammaglobulinaemia [Unknown]
  - Off label use [Unknown]
